FAERS Safety Report 5868613-8 (Version None)
Quarter: 2008Q3

REPORT INFORMATION
  Report Type: 
  Country: None (occurrence: None)
  Receive Date: 20080903
  Receipt Date: 20040112
  Transmission Date: 20090109
  Serious: Yes (Other)
  Sender: FDA-Public Use
  Company Number: US-BAYER-200830614NA

PATIENT
  Sex: Male

DRUGS (1)
  1. AVELOX [Suspect]
     Indication: SINUSITIS
     Route: 048
     Dates: start: 20040101, end: 20040101

REACTIONS (5)
  - ANXIETY [None]
  - FEELING ABNORMAL [None]
  - FEELING OF DESPAIR [None]
  - SUICIDAL IDEATION [None]
  - TREMOR [None]
